FAERS Safety Report 7777162-1 (Version None)
Quarter: 2011Q3

REPORT INFORMATION
  Report Type: 
  Country: None (occurrence: None)
  Receive Date: 20110926
  Receipt Date: 20110913
  Transmission Date: 20111222
  Serious: Yes (Hospitalization)
  Sender: FDA-Public Use
  Company Number: US-BAYER-2010-002160

PATIENT
  Sex: Female
  Weight: 90.703 kg

DRUGS (8)
  1. DROSPIRENONE AND ETHINYL ESTRADIOL [Suspect]
     Dosage: UNK
     Route: 048
     Dates: start: 20030701, end: 20090801
  2. YASMIN [Suspect]
     Dosage: UNK
     Route: 048
     Dates: start: 20030701, end: 20090801
  3. DROSPIRENONE AND ETHINYL ESTRADIOL [Suspect]
     Indication: PREMENSTRUAL SYNDROME
     Dosage: UNK
     Dates: start: 20030701, end: 20081001
  4. YASMIN [Suspect]
     Indication: PREMENSTRUAL SYNDROME
     Dosage: UNK
     Dates: start: 20030701, end: 20081001
  5. SYNTHROID [Concomitant]
  6. UNSPECIFIED DIET PILLS [Concomitant]
  7. YAZ [Suspect]
     Indication: PREMENSTRUAL SYNDROME
     Dosage: UNK
     Dates: start: 20030701, end: 20081001
  8. YAZ [Suspect]
     Dosage: UNK
     Route: 048
     Dates: start: 20030701, end: 20090801

REACTIONS (2)
  - CEREBROVASCULAR ACCIDENT [None]
  - GALLBLADDER DISORDER [None]
